FAERS Safety Report 4715431-X (Version None)
Quarter: 2005Q3

REPORT INFORMATION
  Report Type: 
  Country: None (occurrence: None)
  Receive Date: 20050713
  Receipt Date: 20050630
  Transmission Date: 20060218
  Serious: Yes (Life-Threatening, Hospitalization, Other)
  Sender: FDA-Public Use
  Company Number: 2005070853

PATIENT
  Age: 70 Year
  Sex: Female
  Weight: 81.1939 kg

DRUGS (6)
  1. BEXTRA [Suspect]
     Indication: ARTHRITIS
     Dosage: 20 MG (20 MG, 1 IN 1 D), ORAL
     Route: 048
     Dates: start: 20030101, end: 20050201
  2. TOPROL (METOPROLOL) [Concomitant]
  3. ASACOL [Concomitant]
  4. ZANTAC [Concomitant]
  5. KLONOPIN [Concomitant]
  6. ECOTRIN (ACETYLSALICYLIC ACID) [Concomitant]

REACTIONS (8)
  - APHASIA [None]
  - CARDIAC DISORDER [None]
  - CEREBROVASCULAR ACCIDENT [None]
  - DYSARTHRIA [None]
  - HEMIPLEGIA [None]
  - HYPOAESTHESIA [None]
  - HYPOAESTHESIA ORAL [None]
  - RASH ERYTHEMATOUS [None]
